FAERS Safety Report 4701682-7 (Version None)
Quarter: 2005Q2

REPORT INFORMATION
  Report Type: 
  Country: None (occurrence: None)
  Receive Date: 20050627
  Receipt Date: 20050609
  Transmission Date: 20051028
  Serious: Yes (Other)
  Sender: FDA-Public Use
  Company Number: S05-FRA-02195-01

PATIENT
  Sex: Male

DRUGS (1)
  1. EBIXA (MEMANTINE) [Suspect]
     Dosage: 5 MG QD PO
     Route: 048

REACTIONS (2)
  - DISEASE RECURRENCE [None]
  - SINOATRIAL BLOCK [None]
